FAERS Safety Report 13318984 (Version 3)
Quarter: 2017Q2

REPORT INFORMATION
  Report Type: Report from Study
  Country: DE (occurrence: DE)
  Receive Date: 20170310
  Receipt Date: 20170410
  Transmission Date: 20170830
  Serious: Yes (Hospitalization)
  Sender: FDA-Public Use
  Company Number: DE-VIFOR (INTERNATIONAL) INC.-VIT-2017-02197

PATIENT
  Age: 68 Year
  Sex: Male
  Weight: 67.2 kg

DRUGS (19)
  1. RENAGEL [Concomitant]
     Active Substance: SEVELAMER HYDROCHLORIDE
     Indication: CHRONIC KIDNEY DISEASE
     Dates: start: 20151028, end: 20160317
  2. INNOHEP MULTI 500 [Concomitant]
     Dates: start: 20160819, end: 20160915
  3. FERRLECIT [Concomitant]
     Active Substance: SODIUM FERRIC GLUCONATE COMPLEX
     Dates: start: 20160427, end: 20161101
  4. FERRLECIT [Concomitant]
     Active Substance: SODIUM FERRIC GLUCONATE COMPLEX
     Route: 042
     Dates: start: 20161102
  5. OMEPRAZOLE. [Concomitant]
     Active Substance: OMEPRAZOLE
     Indication: PROPHYLAXIS
     Dates: start: 20141008
  6. INNOHEP MULTI 500 [Concomitant]
     Dates: start: 20160803, end: 20160818
  7. FERRLECIT [Concomitant]
     Active Substance: SODIUM FERRIC GLUCONATE COMPLEX
     Indication: IRON DEFICIENCY
     Dates: start: 20151125, end: 20160426
  8. RENAGEL [Concomitant]
     Active Substance: SEVELAMER HYDROCHLORIDE
     Dates: start: 20160318, end: 20161006
  9. RENAGEL [Concomitant]
     Active Substance: SEVELAMER HYDROCHLORIDE
     Dates: start: 20161007
  10. INNOHEP MULTI 500 [Concomitant]
     Dates: start: 20160421, end: 20160426
  11. INNOHEP MULTI 500 [Concomitant]
     Dates: start: 20160906
  12. DEKRISTOL [Concomitant]
     Active Substance: CHOLECALCIFEROL
     Dates: start: 20160520
  13. ASPIRIN. [Concomitant]
     Active Substance: ASPIRIN
     Indication: PROPHYLAXIS
     Dates: start: 20150605
  14. VELPHORO [Suspect]
     Active Substance: FERRIC OXYHYDROXIDE
     Indication: BLOOD PHOSPHORUS ABNORMAL
     Route: 048
     Dates: start: 20160608
  15. VELPHORO [Suspect]
     Active Substance: FERRIC OXYHYDROXIDE
     Route: 048
     Dates: start: 20160708, end: 20160729
  16. DEKRISTOL [Concomitant]
     Active Substance: CHOLECALCIFEROL
     Indication: VITAMIN D DEFICIENCY
     Dates: start: 20150415, end: 20160501
  17. INNOHEP MULTI 500 [Concomitant]
     Dates: start: 20160427, end: 20160802
  18. OSTEOTRIOL [Concomitant]
     Indication: VITAMIN D DEFICIENCY
     Dates: start: 20150302
  19. INNOHEP MULTI 500 [Concomitant]
     Indication: CHRONIC KIDNEY DISEASE
     Dates: start: 20151002, end: 20160420

REACTIONS (2)
  - Erysipelas [Unknown]
  - Faeces discoloured [Recovered/Resolved]

NARRATIVE: CASE EVENT DATE: 20160608
